FAERS Safety Report 8606727-X (Version None)
Quarter: 2012Q3

REPORT INFORMATION
  Report Type: 
  Country: None (occurrence: None)
  Receive Date: 20120820
  Receipt Date: 20120810
  Transmission Date: 20120928
  Serious: Yes (Hospitalization)
  Sender: FDA-Public Use
  Company Number: US-ABBOTT-12P-163-0967656-00

PATIENT
  Age: 47 Year
  Sex: Female

DRUGS (14)
  1. METHOTREXATE [Suspect]
     Indication: PRODUCT USED FOR UNKNOWN INDICATION
     Dosage: 3 PILLS WEEKLY
  2. BUPROPION HCL [Concomitant]
     Indication: DEPRESSION
  3. MELOXICAM [Concomitant]
     Indication: PAIN
     Dosage: 2 TIMES DAILY AS NEEDED
  4. SULFASALAZINE [Concomitant]
     Indication: RHEUMATOID ARTHRITIS
     Dosage: DAILY
  5. PRISTIQ [Concomitant]
     Indication: DEPRESSION
     Dosage: DAILY
  6. FOLIC ACID [Concomitant]
     Indication: RHEUMATOID ARTHRITIS
     Dosage: DAILY
  7. HUMIRA [Suspect]
     Dosage: HALF OF A 40 MG PFS WEEKLY
  8. PILOCARPINE [Concomitant]
     Indication: SJOGREN'S SYNDROME
  9. OMEPRAZOLE [Concomitant]
     Indication: DYSPEPSIA
     Dosage: DAILY
  10. BUPROPION HCL [Concomitant]
     Indication: ANXIETY
  11. PRISTIQ [Concomitant]
     Indication: ANXIETY
  12. HUMIRA [Suspect]
     Indication: RHEUMATOID ARTHRITIS
     Dates: start: 20080101
  13. PILOCARPINE [Concomitant]
     Indication: RAYNAUD'S PHENOMENON
     Dosage: 1-3 DAILY AS NEEDED
  14. CELEBREX [Concomitant]
     Indication: PAIN
     Dosage: 1 DAILY AS NEEDED

REACTIONS (6)
  - INFLAMMATION [None]
  - DYSPNOEA [None]
  - CHEST PAIN [None]
  - RHEUMATOID ARTHRITIS [None]
  - DRUG HYPERSENSITIVITY [None]
  - HEART RATE ABNORMAL [None]
